FAERS Safety Report 7821951-1 (Version None)
Quarter: 2011Q4

REPORT INFORMATION
  Report Type: 
  Country: None (occurrence: None)
  Receive Date: 20111018
  Receipt Date: 20101022
  Transmission Date: 20120403
  Serious: No
  Sender: FDA-Public Use
  Company Number: US-ASTRAZENECA-2010SE50374

PATIENT
  Sex: Female

DRUGS (2)
  1. SYMBICORT [Suspect]
     Indication: PNEUMONIA
     Dosage: TOTAL DAILY DOSE 160/4.5 MCG, BID
     Route: 055
     Dates: start: 20090601
  2. AVELOX [Concomitant]

REACTIONS (5)
  - PNEUMONIA [None]
  - CHILLS [None]
  - DRUG DOSE OMISSION [None]
  - PYREXIA [None]
  - PRODUCTIVE COUGH [None]
